FAERS Safety Report 5774057-X (Version None)
Quarter: 2008Q2

REPORT INFORMATION
  Report Type: 
  Country: None (occurrence: None)
  Receive Date: 20080601
  Receipt Date: 20080317
  Transmission Date: 20081010
  Serious: No
  Sender: FDA-Public Use
  Company Number: US200803004051

PATIENT
  Age: 74 Year
  Sex: Male

DRUGS (3)
  1. BYETTA [Suspect]
     Indication: TYPE 2 DIABETES MELLITUS
     Dosage: 5 UG, 2/D, SUBCUTANEOUS ; 10 UG, 2/D, SUBCUTANEOUS
     Route: 058
     Dates: start: 20070101, end: 20070201
  2. BYETTA [Suspect]
     Indication: TYPE 2 DIABETES MELLITUS
     Dosage: 5 UG, 2/D, SUBCUTANEOUS ; 10 UG, 2/D, SUBCUTANEOUS
     Route: 058
     Dates: start: 20070201
  3. METFORMIN HCL [Concomitant]

REACTIONS (2)
  - DIARRHOEA [None]
  - MEMORY IMPAIRMENT [None]
